FAERS Safety Report 21280224 (Version 1)
Quarter: 2022Q3

REPORT INFORMATION
  Report Type: Report from Study
  Country: US (occurrence: US)
  Receive Date: 20220901
  Receipt Date: 20220901
  Transmission Date: 20221027
  Serious: Yes (Other)
  Sender: FDA-Public Use
  Company Number: US-UCBSA-2022040425

PATIENT
  Age: 52 Year
  Sex: Female

DRUGS (2)
  1. CERTOLIZUMAB PEGOL [Suspect]
     Active Substance: CERTOLIZUMAB PEGOL
     Indication: Psoriatic arthropathy
     Dosage: 200 MILLIGRAM, EV 2 WEEKS(QOW)
     Route: 058
     Dates: start: 20220420, end: 20220805
  2. LEFLUNOMIDE [Concomitant]
     Active Substance: LEFLUNOMIDE
     Indication: Pain

REACTIONS (6)
  - Ingrowing nail [Unknown]
  - Surgery [Unknown]
  - Vaginal haemorrhage [Unknown]
  - Pain [Unknown]
  - Tendonitis [Unknown]
  - Fatigue [Unknown]

NARRATIVE: CASE EVENT DATE: 20220811
